FAERS Safety Report 6322790-3 (Version None)
Quarter: 2009Q3

REPORT INFORMATION
  Report Type: 
  Country: None (occurrence: None)
  Receive Date: 20090824
  Receipt Date: 20090810
  Transmission Date: 20100115
  Serious: Yes (Other)
  Sender: FDA-Public Use
  Company Number: PHHY2009TR33438

PATIENT
  Sex: Male

DRUGS (6)
  1. CLOZAPINE [Suspect]
     Indication: SCHIZOPHRENIA
     Dosage: 150 MG DAILY
  2. CLOZAPINE [Suspect]
     Dosage: 200 MG DAILY
  3. CLOZAPINE [Suspect]
     Dosage: 150 MG DAILY
  4. CLOZAPINE [Suspect]
     Dosage: 200 MG DAILY
  5. CLOZAPINE [Suspect]
     Dosage: 250 MG DAILY
  6. CLOZAPINE [Suspect]
     Dosage: 325 MG DAILY

REACTIONS (3)
  - OBSESSIVE THOUGHTS [None]
  - OBSESSIVE-COMPULSIVE DISORDER [None]
  - SEDATION [None]
